FAERS Safety Report 8967032 (Version 1)
Quarter: 2012Q4

REPORT INFORMATION
  Report Type: 
  Country: BR (occurrence: BR)
  Receive Date: 20121217
  Receipt Date: 20121217
  Transmission Date: 20130627
  Serious: Yes (Other)
  Sender: FDA-Public Use
  Company Number: PHHY2012BR115572

PATIENT
  Sex: Female

DRUGS (1)
  1. ESTRADOT [Suspect]
     Dosage: 50 ug,

REACTIONS (4)
  - Drug dependence [Unknown]
  - Malaise [Not Recovered/Not Resolved]
  - Insomnia [Not Recovered/Not Resolved]
  - Hot flush [Not Recovered/Not Resolved]
